FAERS Safety Report 22009795 (Version 2)
Quarter: 2023Q1

REPORT INFORMATION
  Report Type: Spontaneous
  Country: US (occurrence: US)
  Receive Date: 20230220
  Receipt Date: 20230221
  Transmission Date: 20230418
  Serious: No
  Sender: FDA-Public Use
  Company Number: US-002147023-NVSC2023US031066

PATIENT
  Sex: Female
  Weight: 68.04 kg

DRUGS (4)
  1. ALBUTEROL SULFATE [Suspect]
     Active Substance: ALBUTEROL SULFATE
     Indication: Dyspnoea
     Dosage: UNK (INHALED 2 PUFF EVERY 4 HOURS AS NEEDED)
  2. SYNTHROID [Concomitant]
     Active Substance: LEVOTHYROXINE SODIUM
     Indication: Thyroid disorder
     Dosage: 112 MCG, QD
     Route: 065
     Dates: start: 2013
  3. CYTOMEL [Concomitant]
     Active Substance: LIOTHYRONINE SODIUM
     Indication: Thyroidectomy
     Dosage: 20 MCG
     Route: 065
     Dates: start: 2013
  4. VITAMIN C [Concomitant]
     Active Substance: ASCORBIC ACID
     Indication: Nutritional supplementation
     Dosage: UNK (CHEWABLE)
     Route: 065

REACTIONS (4)
  - COVID-19 [Unknown]
  - Anxiety [Unknown]
  - Device issue [Unknown]
  - Incorrect dose administered [Unknown]
